FAERS Safety Report 25481421 (Version 4)
Quarter: 2025Q4

REPORT INFORMATION
  Report Type: Spontaneous
  Country: US (occurrence: US)
  Receive Date: 20250626
  Receipt Date: 20251126
  Transmission Date: 20260118
  Serious: Yes (Other)
  Sender: BRISTOL-MYERS SQUIBB COMPANY
  Company Number: US-BRISTOL-MYERS SQUIBB COMPANY-2025-090746

PATIENT
  Age: 72 Year
  Sex: Female

DRUGS (3)
  1. POMALYST [Suspect]
     Active Substance: POMALIDOMIDE
     Indication: Plasma cell myeloma in remission
     Route: 048
  2. POMALYST [Suspect]
     Active Substance: POMALIDOMIDE
     Route: 048
  3. POMALYST [Suspect]
     Active Substance: POMALIDOMIDE
     Route: 048

REACTIONS (11)
  - Dyspepsia [Unknown]
  - Contusion [Unknown]
  - Dry skin [Unknown]
  - Weight increased [Unknown]
  - Sinusitis bacterial [Unknown]
  - Product dose omission issue [Unknown]
  - Cataract [Unknown]
  - Malaise [Unknown]
  - Insomnia [Unknown]
  - Blepharospasm [Unknown]
  - Hypoacusis [Unknown]
